FAERS Safety Report 6900391-3 (Version None)
Quarter: 2010Q3

REPORT INFORMATION
  Report Type: 
  Country: None (occurrence: None)
  Receive Date: 20100803
  Receipt Date: 20100723
  Transmission Date: 20110219
  Serious: Yes (Other)
  Sender: FDA-Public Use
  Company Number: PHHY2010MX48802

PATIENT
  Age: 48 Year
  Sex: Female

DRUGS (2)
  1. ACLASTA [Suspect]
     Indication: OSTEOPOROSIS
     Dosage: (5MG/100ML) PER YEAR
     Dates: start: 20090201
  2. BONIVA [Concomitant]

REACTIONS (4)
  - CONSTIPATION [None]
  - FATIGUE [None]
  - NEPHROLITHIASIS [None]
  - SPINAL DISORDER [None]
